APPROVED DRUG PRODUCT: CIMETIDINE HYDROCHLORIDE
Active Ingredient: CIMETIDINE HYDROCHLORIDE
Strength: EQ 300MG BASE/2ML
Dosage Form/Route: INJECTABLE;INJECTION
Application: A074252 | Product #001
Applicant: TEVA PARENTERAL MEDICINES INC
Approved: Nov 26, 1997 | RLD: No | RS: No | Type: DISCN